FAERS Safety Report 6103742-5 (Version None)
Quarter: 2009Q1

REPORT INFORMATION
  Report Type: 
  Country: None (occurrence: None)
  Receive Date: 20090305
  Receipt Date: 20090303
  Transmission Date: 20090719
  Serious: Yes (Death, Hospitalization, Other)
  Sender: FDA-Public Use
  Company Number: PHHY2009BR07145

PATIENT
  Age: 85 Year
  Sex: Female

DRUGS (3)
  1. STALEVO 100 [Suspect]
     Indication: PARKINSON'S DISEASE
     Dosage: 50 MG, TID
     Route: 048
     Dates: start: 20080601
  2. PROLOPA [Concomitant]
     Indication: PARKINSON'S DISEASE
     Dosage: 3 TABLETS DAILY
     Route: 048
     Dates: start: 20070101
  3. ARTANE [Concomitant]
     Indication: PARKINSON'S DISEASE
     Dosage: 1-2 TABLETS DAILY
     Route: 048

REACTIONS (12)
  - CARDIAC ARREST [None]
  - DISEASE PROGRESSION [None]
  - DYSPHAGIA [None]
  - DYSPNOEA [None]
  - HYPOTENSION [None]
  - LUNG DISORDER [None]
  - LUNG INFECTION [None]
  - MULTI-ORGAN FAILURE [None]
  - PARKINSON'S DISEASE [None]
  - PNEUMONIA [None]
  - PNEUMONIA ASPIRATION [None]
  - PULMONARY OEDEMA [None]
